FAERS Safety Report 9871271 (Version 1)
Quarter: 2014Q1

REPORT INFORMATION
  Report Type: Spontaneous
  Country: US (occurrence: US)
  Receive Date: 20140205
  Receipt Date: 20140205
  Transmission Date: 20141002
  Serious: Yes (Other)
  Sender: FDA-Public Use
  Company Number: US-GLAXOSMITHKLINE-A1059735A

PATIENT
  Age: 58 Year
  Sex: Male

DRUGS (8)
  1. VOTRIENT [Suspect]
     Indication: RENAL CANCER
     Dosage: 600MG PER DAY
     Route: 048
     Dates: start: 20130521
  2. MIRALAX [Concomitant]
  3. HYDROCODONE ACETAMINOPHEN [Concomitant]
  4. MORPHINE [Concomitant]
  5. VITAMIN B6 [Concomitant]
  6. FAMOTIDINE [Concomitant]
  7. ONDANSETRON [Concomitant]
  8. NAPROXEN [Concomitant]

REACTIONS (2)
  - Spinal operation [Unknown]
  - Local swelling [Not Recovered/Not Resolved]
